FAERS Safety Report 9735568 (Version 2)
Quarter: 2015Q3

REPORT INFORMATION
  Report Type: Spontaneous
  Country: US (occurrence: US)
  Receive Date: 20131206
  Receipt Date: 20150804
  Transmission Date: 20151125
  Serious: No
  Sender: FDA-Public Use
  Company Number: US-GILEAD-2009-0023920

PATIENT
  Age: 85 Year
  Sex: Female
  Weight: 51.71 kg

DRUGS (17)
  1. ADULT LOW DOSE ASA [Concomitant]
  2. NEURONTIN [Concomitant]
     Active Substance: GABAPENTIN
  3. LASIX [Concomitant]
     Active Substance: FUROSEMIDE
  4. SYNTHROID [Concomitant]
     Active Substance: LEVOTHYROXINE SODIUM
  5. POTASSIUM CHLORIDE. [Concomitant]
     Active Substance: POTASSIUM CHLORIDE
  6. CLINDAMYCIN HCL [Concomitant]
     Active Substance: CLINDAMYCIN HYDROCHLORIDE
  7. COREG [Concomitant]
     Active Substance: CARVEDILOL
  8. MANGANESE/NICOTINAMIDE/RETINOL/TOCOPHEROL/ASCORBIC ACID/CUPRIC OXIDE/RIBOFLAVIN/GLUTATHIONE/SODIUM S [Concomitant]
  9. VITAMIN E [Concomitant]
     Active Substance: .ALPHA.-TOCOPHEROL
  10. ACYCLOVIR. [Concomitant]
     Active Substance: ACYCLOVIR
  11. MAGNESIUM-OXIDE [Concomitant]
  12. A-Z MULTIVITAMIN [Concomitant]
  13. OXYGEN. [Concomitant]
     Active Substance: OXYGEN
  14. COLACE [Concomitant]
     Active Substance: DOCUSATE SODIUM
  15. LETAIRIS [Suspect]
     Active Substance: AMBRISENTAN
     Indication: PULMONARY ARTERIAL HYPERTENSION
     Route: 048
     Dates: start: 20080728
  16. VITAMIN B12 [Concomitant]
     Active Substance: CYANOCOBALAMIN
  17. DIGOXIN. [Concomitant]
     Active Substance: DIGOXIN

REACTIONS (2)
  - Weight increased [Unknown]
  - Swelling [Unknown]
